FAERS Safety Report 8413540-5 (Version None)
Quarter: 2012Q2

REPORT INFORMATION
  Report Type: 
  Country: None (occurrence: None)
  Receive Date: 20120605
  Receipt Date: 20120525
  Transmission Date: 20120825
  Serious: Yes (Death)
  Sender: FDA-Public Use
  Company Number: US-GLAXOSMITHKLINE-A0979937A

PATIENT
  Sex: Female

DRUGS (3)
  1. TYKERB [Suspect]
     Indication: BREAST CANCER
     Dosage: 1250MG SEE DOSAGE TEXT
     Route: 048
     Dates: start: 20120428
  2. XELODA [Concomitant]
  3. BARACLUDE [Concomitant]

REACTIONS (1)
  - DEATH [None]
